FAERS Safety Report 10728060 (Version 2)
Quarter: 2015Q1

REPORT INFORMATION
  Report Type: Spontaneous
  Country: US (occurrence: US)
  Receive Date: 20150121
  Receipt Date: 20150212
  Transmission Date: 20150721
  Serious: Yes (Other)
  Sender: FDA-Public Use
  Company Number: US-PFIZER INC-2015018004

PATIENT
  Age: 88 Year
  Sex: Female

DRUGS (1)
  1. XALATAN [Suspect]
     Active Substance: LATANOPROST
     Indication: GLAUCOMA
     Dosage: 1 GTT  EACH EYE, QHS
     Route: 047

REACTIONS (2)
  - Fall [Unknown]
  - Arthropathy [Unknown]

NARRATIVE: CASE EVENT DATE: 20130925
